FAERS Safety Report 4744951-7 (Version None)
Quarter: 2005Q3

REPORT INFORMATION
  Report Type: 
  Country: None (occurrence: None)
  Receive Date: 20050811
  Receipt Date: 20050803
  Transmission Date: 20060218
  Serious: Yes (Disabling, Other)
  Sender: FDA-Public Use
  Company Number: HQWYE562905MAY05

PATIENT
  Age: 56 Year
  Sex: Female
  Weight: 54.48 kg

DRUGS (5)
  1. EFFEXOR XR [Suspect]
     Indication: HOT FLUSH
     Dosage: SEE IMAGE
     Route: 048
     Dates: start: 20030401, end: 20030101
  2. EFFEXOR XR [Suspect]
     Indication: HOT FLUSH
     Dosage: SEE IMAGE
     Route: 048
     Dates: start: 20030101, end: 20050411
  3. EFFEXOR XR [Suspect]
     Indication: HOT FLUSH
     Dosage: SEE IMAGE
     Route: 048
     Dates: start: 20050412, end: 20050423
  4. EFFEXOR XR [Suspect]
     Indication: HOT FLUSH
     Dosage: SEE IMAGE
     Route: 048
     Dates: start: 20050424
  5. AROMASIN [Concomitant]

REACTIONS (11)
  - AGITATION [None]
  - ANXIETY [None]
  - DIZZINESS [None]
  - DRUG DEPENDENCE [None]
  - DRUG DOSE OMISSION [None]
  - DRUG WITHDRAWAL SYNDROME [None]
  - HEADACHE [None]
  - NAUSEA [None]
  - TREATMENT NONCOMPLIANCE [None]
  - VISION BLURRED [None]
  - WHITE BLOOD CELL COUNT DECREASED [None]
